FAERS Safety Report 5057382-X (Version None)
Quarter: 2006Q3

REPORT INFORMATION
  Report Type: 
  Country: None (occurrence: None)
  Receive Date: 20060721
  Receipt Date: 20050908
  Transmission Date: 20061208
  Serious: No
  Sender: FDA-Public Use
  Company Number: US-GLAXOSMITHKLINE-A0573496A

PATIENT
  Age: 47 Year
  Sex: Female

DRUGS (8)
  1. AVANDIA [Suspect]
     Dosage: 2MG PER DAY
     Route: 048
     Dates: start: 20040101
  2. AVANDAMET [Suspect]
     Dosage: 1TAB PER DAY
     Route: 048
     Dates: start: 20050801
  3. NEFAZODONE HCL [Concomitant]
  4. PROTONIX [Concomitant]
  5. DAPSONE [Concomitant]
  6. VITAMIN B-12 [Concomitant]
     Route: 048
  7. MULTIVITAMIN LIQUID [Concomitant]
  8. TAR SHAMPOO [Concomitant]

REACTIONS (5)
  - BREAST SWELLING [None]
  - COELIAC DISEASE [None]
  - LOCAL SWELLING [None]
  - PRURITUS [None]
  - URTICARIA [None]
